FAERS Safety Report 7933036-4 (Version None)
Quarter: 2011Q4

REPORT INFORMATION
  Report Type: 
  Country: None (occurrence: None)
  Receive Date: 20111122
  Receipt Date: 20111109
  Transmission Date: 20120403
  Serious: Yes (Hospitalization)
  Sender: FDA-Public Use
  Company Number: US-ELI_LILLY_AND_COMPANY-US201104002213

PATIENT
  Sex: Female

DRUGS (13)
  1. VITAMIN D [Concomitant]
  2. GLUCOSAMINE [Concomitant]
  3. ASPIRIN [Concomitant]
  4. FERROUS GLUCONATE [Concomitant]
  5. FOLIC ACID [Concomitant]
  6. PRILOSEC [Concomitant]
  7. FEXOFENADINE [Concomitant]
  8. CALCIUM [Concomitant]
  9. VITAMIN B-12 [Concomitant]
  10. FORTEO [Suspect]
     Indication: OSTEOPOROSIS
     Dosage: 20 UG, QD
     Route: 058
  11. FORTEO [Suspect]
     Dosage: 20 UG, QD
     Route: 058
  12. FORTEO [Suspect]
     Dosage: 20 UG, QD
  13. FISH OIL [Concomitant]

REACTIONS (9)
  - INFECTION [None]
  - HYPERKERATOSIS [None]
  - BUNION [None]
  - CELLULITIS [None]
  - CATARACT [None]
  - HIP FRACTURE [None]
  - FALL [None]
  - LOCALISED INFECTION [None]
  - LIMB INJURY [None]
